FAERS Safety Report 5952111-7 (Version None)
Quarter: 2008Q4

REPORT INFORMATION
  Report Type: 
  Country: None (occurrence: None)
  Receive Date: 20081113
  Receipt Date: 20080421
  Transmission Date: 20090506
  Serious: No
  Sender: FDA-Public Use
  Company Number: A0724923A

PATIENT
  Sex: Female

DRUGS (5)
  1. COREG [Suspect]
     Route: 048
     Dates: start: 20060101
  2. LISINOPRIL [Concomitant]
  3. SPIRONOLACTONE [Concomitant]
  4. LASIX [Concomitant]
  5. PAIN MEDICATION [Concomitant]

REACTIONS (4)
  - ALOPECIA [None]
  - DIZZINESS [None]
  - PERIPHERAL COLDNESS [None]
  - SWELLING [None]
